FAERS Safety Report 6228821-3 (Version None)
Quarter: 2009Q2

REPORT INFORMATION
  Report Type: 
  Country: None (occurrence: None)
  Receive Date: 20090615
  Receipt Date: 20090608
  Transmission Date: 20091009
  Serious: Yes (Other)
  Sender: FDA-Public Use
  Company Number: PHHY2008JP23181

PATIENT

DRUGS (2)
  1. EXJADE [Suspect]
     Indication: IRON OVERLOAD
     Dosage: 500 MG, QD
     Route: 048
     Dates: start: 20080829, end: 20081008
  2. EXJADE [Suspect]
     Indication: APLASTIC ANAEMIA
     Dosage: 500 MG, QD
     Dates: start: 20081212

REACTIONS (2)
  - BLOOD GLUCOSE INCREASED [None]
  - COUGH [None]
